FAERS Safety Report 8406490-1 (Version None)
Quarter: 2012Q2

REPORT INFORMATION
  Report Type: 
  Country: None (occurrence: None)
  Receive Date: 20120604
  Receipt Date: 20120529
  Transmission Date: 20120825
  Serious: Yes (Hospitalization)
  Sender: FDA-Public Use
  Company Number: US-BAYER-2012-053954

PATIENT
  Age: 40 Year
  Sex: Female

DRUGS (3)
  1. PREVACID [Concomitant]
  2. YAZ [Suspect]
     Dosage: UNK
     Dates: start: 20070116, end: 20080125
  3. OXYCODONE HCL AND ACETAMINOPHEN [Concomitant]
     Dosage: 5/325
     Dates: start: 20080708

REACTIONS (5)
  - CHOLECYSTITIS CHRONIC [None]
  - DEEP VEIN THROMBOSIS [None]
  - PERIPHERAL PULSE DECREASED [None]
  - FEELING COLD [None]
  - SKIN DISCOLOURATION [None]
